FAERS Safety Report 5823959-4 (Version None)
Quarter: 2008Q3

REPORT INFORMATION
  Report Type: 
  Country: None (occurrence: None)
  Receive Date: 20080724
  Receipt Date: 20080710
  Transmission Date: 20090109
  Serious: Yes (Hospitalization)
  Sender: FDA-Public Use
  Company Number: 235445J08USA

PATIENT
  Age: 32 Year
  Sex: Male

DRUGS (1)
  1. REBIF [Suspect]
     Indication: MULTIPLE SCLEROSIS
     Dosage: 44 MCG, 3 IN 1 WEEKS, SUBCUTANEOUS
     Route: 058
     Dates: start: 20080321

REACTIONS (5)
  - CONDITION AGGRAVATED [None]
  - MULTIPLE SCLEROSIS [None]
  - PYREXIA [None]
  - VERTIGO [None]
  - VOMITING [None]
